FAERS Safety Report 18970176 (Version 2)
Quarter: 2022Q1

REPORT INFORMATION
  Report Type: Spontaneous
  Country: GB (occurrence: GB)
  Receive Date: 20210304
  Receipt Date: 20220112
  Transmission Date: 20220423
  Serious: Yes (Other)
  Sender: FDA-Public Use
  Company Number: None

PATIENT
  Age: 66 Year
  Sex: Male

DRUGS (21)
  1. ALENDRONIC ACID [Suspect]
     Active Substance: ALENDRONIC ACID
  2. AMLODIPINE BESYLATE [Suspect]
     Active Substance: AMLODIPINE BESYLATE
  3. BISOPROLOL FUMARATE [Suspect]
     Active Substance: BISOPROLOL FUMARATE
  4. CITALOPRAM [Suspect]
     Active Substance: CITALOPRAM HYDROBROMIDE
  5. OMEPRAZOLE [Suspect]
     Active Substance: OMEPRAZOLE
  6. PIROXICAM [Suspect]
     Active Substance: PIROXICAM
  7. PREGABALIN [Suspect]
     Active Substance: PREGABALIN
  8. SILDENAFIL CITRATE [Suspect]
     Active Substance: SILDENAFIL CITRATE
  9. ACETAMINOPHEN [Suspect]
     Active Substance: ACETAMINOPHEN
     Dates: start: 20210223
  10. TAMSULOSIN HYDROCHLORIDE [Suspect]
     Active Substance: TAMSULOSIN HYDROCHLORIDE
  11. TRAMADOL HCL [Suspect]
     Active Substance: TRAMADOL HYDROCHLORIDE
     Dates: start: 20210223
  12. ZOLPIDEM TARTRATE [Suspect]
     Active Substance: ZOLPIDEM TARTRATE
  13. RAMIPRIL [Suspect]
     Active Substance: RAMIPRIL
     Dates: start: 20210223
  14. FUROSEMIDE [Suspect]
     Active Substance: FUROSEMIDE
  15. SIMVASTATIN [Suspect]
     Active Substance: SIMVASTATIN
  16. ALLOPURINOL [Suspect]
     Active Substance: ALLOPURINOL
  17. AMITRIPTYLINE [Suspect]
     Active Substance: AMITRIPTYLINE
  18. CALCIUM CARBONATE\CHOLECALCIFEROL [Suspect]
     Active Substance: CALCIUM CARBONATE\CHOLECALCIFEROL
  19. FOLIC ACID [Suspect]
     Active Substance: FOLIC ACID
  20. HYPROMELLOSES [Suspect]
     Active Substance: HYPROMELLOSES
     Dates: start: 20210223
  21. RIVAROXABAN [Suspect]
     Active Substance: RIVAROXABAN

REACTIONS (1)
  - Pancytopenia [Unknown]
